FAERS Safety Report 5262894-X (Version None)
Quarter: 2007Q1

REPORT INFORMATION
  Report Type: 
  Country: None (occurrence: None)
  Receive Date: 20070308
  Receipt Date: 20070226
  Transmission Date: 20070707
  Serious: No
  Sender: FDA-Public Use
  Company Number: E2020-01012-SPO-DE

PATIENT
  Age: 83 Year
  Sex: Female
  Weight: 50 kg

DRUGS (5)
  1. ARICEPT [Suspect]
     Indication: DEMENTIA ALZHEIMER'S TYPE
     Dosage: 5 MG, 1 IN 1 D, ORAL, 10 MG, 1 IN 1 D, ORAL
     Route: 048
     Dates: start: 20061205, end: 20070115
  2. ARICEPT [Suspect]
     Indication: DEMENTIA ALZHEIMER'S TYPE
     Dosage: 5 MG, 1 IN 1 D, ORAL, 10 MG, 1 IN 1 D, ORAL
     Route: 048
     Dates: start: 20070116, end: 20070119
  3. NOVALGIN (METAMIZOLE SODIUM) [Concomitant]
  4. OSTEOPLUS BRAUSE (CALCIUM CARBONATE) [Concomitant]
  5. FURO 40 (FUROSEMIDE) [Concomitant]

REACTIONS (1)
  - DERMATITIS BULLOUS [None]
